FAERS Safety Report 10756964 (Version 1)
Quarter: 2015Q1

REPORT INFORMATION
  Report Type: Spontaneous
  Country: US (occurrence: US)
  Receive Date: 20150203
  Receipt Date: 20150203
  Transmission Date: 20150721
  Serious: Yes (Hospitalization)
  Sender: FDA-Public Use
  Company Number: PHHY2015US011335

PATIENT
  Age: 50 Year
  Sex: Female

DRUGS (1)
  1. WARFARIN [Suspect]
     Active Substance: WARFARIN
     Indication: PULMONARY EMBOLISM
     Route: 065

REACTIONS (10)
  - Neck pain [Recovering/Resolving]
  - Swelling [Recovering/Resolving]
  - Dysarthria [Recovering/Resolving]
  - Oral pain [Recovering/Resolving]
  - Salivary gland mass [Recovering/Resolving]
  - Mouth haemorrhage [Recovering/Resolving]
  - Oropharyngeal pain [Recovering/Resolving]
  - Dysphagia [Recovering/Resolving]
  - Tongue movement disturbance [Recovering/Resolving]
  - Haematoma [Recovering/Resolving]
